FAERS Safety Report 9753754 (Version 1)
Quarter: 2013Q4

REPORT INFORMATION
  Report Type: Spontaneous
  Country: US (occurrence: US)
  Receive Date: 20131213
  Receipt Date: 20131213
  Transmission Date: 20140711
  Serious: No
  Sender: FDA-Public Use
  Company Number: US-GILEAD-2010-0026632

PATIENT
  Age: 79 Year
  Sex: Female

DRUGS (13)
  1. LETAIRIS [Suspect]
     Indication: PULMONARY ARTERIAL HYPERTENSION
     Route: 048
     Dates: start: 20091201
  2. SENSIPAR [Concomitant]
  3. ISMO [Concomitant]
  4. PROCRIT [Concomitant]
  5. RENAGEL [Concomitant]
  6. ASA LO-DOSE [Concomitant]
  7. PRILOSEC [Concomitant]
  8. TRAMADOL HCL [Concomitant]
  9. REGLAN [Concomitant]
  10. DIOVAN [Concomitant]
  11. LOPID [Concomitant]
  12. LIPITOR [Concomitant]
  13. HUMALOG [Concomitant]
     Dates: start: 20091201

REACTIONS (3)
  - Dizziness [Unknown]
  - Local swelling [Unknown]
  - Dyspnoea [Unknown]
